FAERS Safety Report 8889396 (Version 1)
Quarter: 2012Q4

REPORT INFORMATION
  Report Type: Spontaneous
  Country: US (occurrence: None)
  Receive Date: 20121102
  Receipt Date: 20121102
  Transmission Date: 20130627
  Serious: No
  Sender: FDA-Public Use
  Company Number: None

PATIENT
  Age: 43 Year
  Sex: Female
  Weight: 63.5 kg

DRUGS (2)
  1. LAMOTRIGINE 100MG [Suspect]
     Indication: BIPOLAR DEPRESSION
     Route: 048
  2. BOTOX [Suspect]
     Indication: SKIN COSMETIC PROCEDURE

REACTIONS (2)
  - Leukocytoclastic vasculitis [None]
  - Pain [None]
